FAERS Safety Report 7964323-1 (Version None)
Quarter: 2011Q4

REPORT INFORMATION
  Report Type: 
  Country: None (occurrence: None)
  Receive Date: 20111208
  Receipt Date: 20111128
  Transmission Date: 20120403
  Serious: Yes (Other)
  Sender: FDA-Public Use
  Company Number: US-BAYER-2011-045426

PATIENT
  Age: 23 Year
  Sex: Female
  Weight: 51.247 kg

DRUGS (5)
  1. YAZ [Suspect]
     Indication: CONTRACEPTION
     Dosage: UNK
     Dates: start: 20010101, end: 20100221
  2. ALPRAZOLAM [Concomitant]
     Indication: DIZZINESS
  3. SYNTHROID [Concomitant]
     Indication: HYPOTHYROIDISM
     Dosage: 125 ?G, QD
     Dates: start: 20080701
  4. YASMIN [Suspect]
     Indication: CONTRACEPTION
     Dosage: UNK
     Dates: start: 20010101, end: 20100221
  5. ALPRAZOLAM [Concomitant]
     Indication: VERTIGO
     Dosage: 0.5 MG, PRN
     Dates: start: 20051201

REACTIONS (2)
  - GALLBLADDER DISORDER [None]
  - CHOLECYSTITIS CHRONIC [None]
